FAERS Safety Report 17249242 (Version 11)
Quarter: 2021Q1

REPORT INFORMATION
  Report Type: Spontaneous
  Country: US (occurrence: US)
  Receive Date: 20200108
  Receipt Date: 20210319
  Transmission Date: 20210419
  Serious: Yes (Other)
  Sender: FDA-Public Use
  Company Number: US-PFIZER INC-2019238563

PATIENT
  Age: 48 Year
  Sex: Male

DRUGS (8)
  1. DILANTIN [Suspect]
     Active Substance: PHENYTOIN
     Dosage: UNK, 4X/DAY
  2. DILANTIN [Suspect]
     Active Substance: PHENYTOIN
     Dosage: 160 MG, 2X/DAY (160MG ONCE IN MORNING ONCE IN EVENING)
  3. DILANTIN [Suspect]
     Active Substance: PHENYTOIN
     Dosage: 100 MG
  4. DILANTIN [Suspect]
     Active Substance: PHENYTOIN
     Indication: SEIZURE
     Dosage: 30 MG, 3X/DAY
     Route: 048
  5. DILANTIN [Suspect]
     Active Substance: PHENYTOIN
     Indication: CAROTID ARTERY THROMBOSIS
     Dosage: 400MG, DAILY (STRENGTH: 100MG, TAKE 4 CAPSULES)
     Route: 048
  6. DILANTIN [Suspect]
     Active Substance: PHENYTOIN
     Indication: CEREBRAL INFARCTION
     Dosage: 500 MG, DAILY (STRENGTH: 100MG, 2 CAPS AM AND 3 CAPS PM)
     Route: 048
  7. DILANTIN [Suspect]
     Active Substance: PHENYTOIN
     Dosage: 60 MG, 2X/DAY (STRENGTH: 30 MG FOR 90 DAYS)
     Route: 048
  8. DILANTIN [Suspect]
     Active Substance: PHENYTOIN
     Dosage: UNK, 2X/DAY

REACTIONS (4)
  - Seizure [Unknown]
  - Brain neoplasm [Unknown]
  - Intentional product misuse [Unknown]
  - Drug dependence [Unknown]
